FAERS Safety Report 7238349-X (Version None)
Quarter: 2011Q1

REPORT INFORMATION
  Report Type: 
  Country: None (occurrence: None)
  Receive Date: 20110121
  Receipt Date: 20110117
  Transmission Date: 20110831
  Serious: Yes (Hospitalization)
  Sender: FDA-Public Use
  Company Number: CH-BRISTOL-MYERS SQUIBB COMPANY-15492119

PATIENT
  Age: 32 Year
  Sex: Female

DRUGS (6)
  1. MESNA [Suspect]
     Route: 041
     Dates: start: 20060215, end: 20060426
  2. METHYLPREDNISOLONE SODIUM SUCCINATE [Suspect]
     Route: 042
     Dates: start: 20060215, end: 20060425
  3. NEUPOGEN [Suspect]
     Route: 041
     Dates: start: 20060222, end: 20060505
  4. IFOSFAMIDE [Suspect]
     Route: 041
     Dates: start: 20060215, end: 20060425
  5. DOXORUBICIN HCL [Suspect]
     Route: 041
     Dates: start: 20060215, end: 20060421
  6. ONDANSETRON HCL [Suspect]
     Route: 048
     Dates: start: 20060215, end: 20060426

REACTIONS (3)
  - PREGNANCY [None]
  - DRUG EXPOSURE DURING PREGNANCY [None]
  - CAESAREAN SECTION [None]
